FAERS Safety Report 22651045 (Version 1)
Quarter: 2023Q2

REPORT INFORMATION
  Report Type: Spontaneous
  Country: US (occurrence: US)
  Receive Date: 20230628
  Receipt Date: 20230628
  Transmission Date: 20230721
  Serious: Yes (Hospitalization, Other)
  Sender: FDA-Public Use
  Company Number: US-ELI_LILLY_AND_COMPANY-US202306016021

PATIENT
  Sex: Female

DRUGS (1)
  1. BASAGLAR [Suspect]
     Active Substance: INSULIN GLARGINE
     Indication: Type 2 diabetes mellitus
     Dosage: 50 U, UNKNOWN
     Route: 058
     Dates: start: 2019

REACTIONS (4)
  - Chronic obstructive pulmonary disease [Recovering/Resolving]
  - Carpal tunnel syndrome [Unknown]
  - Pneumonia [Unknown]
  - Asthenia [Unknown]
